FAERS Safety Report 16461840 (Version 1)
Quarter: 2019Q2

REPORT INFORMATION
  Report Type: Spontaneous
  Country: US (occurrence: US)
  Receive Date: 20190621
  Receipt Date: 20190621
  Transmission Date: 20190711
  Serious: No
  Sender: FDA-Public Use
  Company Number: US-009507513-1906USA006996

PATIENT
  Age: 60 Year
  Sex: Female

DRUGS (2)
  1. PROVENTIL [Suspect]
     Active Substance: ALBUTEROL
     Indication: CHRONIC OBSTRUCTIVE PULMONARY DISEASE
     Dosage: 2 DOSAGE FORM, BID
     Route: 055
     Dates: start: 20190603, end: 201906
  2. PROVENTIL [Suspect]
     Active Substance: ALBUTEROL
     Indication: EMPHYSEMA
     Dosage: UNK
     Route: 055
     Dates: start: 201906

REACTIONS (5)
  - Abdominal discomfort [Recovered/Resolved]
  - Product taste abnormal [Unknown]
  - Nausea [Recovered/Resolved]
  - Product use issue [Unknown]
  - Poor quality product administered [Unknown]

NARRATIVE: CASE EVENT DATE: 20190603
